FAERS Safety Report 25871204 (Version 1)
Quarter: 2025Q4

REPORT INFORMATION
  Report Type: Spontaneous
  Country: KR (occurrence: KR)
  Receive Date: 20251001
  Receipt Date: 20251001
  Transmission Date: 20260118
  Serious: Yes (Life-Threatening)
  Sender: AMGEN
  Company Number: KR-AMGEN-KORSP2025192117

PATIENT
  Sex: Female

DRUGS (1)
  1. PROLIA [Suspect]
     Active Substance: DENOSUMAB
     Indication: Osteoporosis
     Dosage: 60 MILLIGRAM, QD
     Route: 065
     Dates: start: 20240716, end: 20240716

REACTIONS (2)
  - Oedema peripheral [Unknown]
  - Tremor [Unknown]

NARRATIVE: CASE EVENT DATE: 20240716
